FAERS Safety Report 4655850-3 (Version None)
Quarter: 2005Q2

REPORT INFORMATION
  Report Type: 
  Country: None (occurrence: None)
  Receive Date: 20050506
  Receipt Date: 20050506
  Transmission Date: 20051028
  Serious: Yes (Other)
  Sender: FDA-Public Use
  Company Number: None

PATIENT
  Age: 40 Year
  Sex: Female
  Weight: 43.9989 kg

DRUGS (2)
  1. REBIF [Suspect]
     Indication: MULTIPLE SCLEROSIS
     Dosage: 8.8MCG   3X WEEK SUBCUTANEOUS
     Route: 058
     Dates: start: 20050425, end: 20050429
  2. REBIF [Suspect]
     Dosage: 22MCG  3X WEEK  SUBCUTANEOUS
     Route: 058
     Dates: start: 20050502, end: 20050506

REACTIONS (3)
  - DEVICE FAILURE [None]
  - INCORRECT DOSE ADMINISTERED [None]
  - MEDICATION ERROR [None]
